FAERS Safety Report 8778624 (Version 1)
Quarter: 2012Q4

REPORT INFORMATION
  Report Type: 
  Country: CN (occurrence: CN)
  Receive Date: 20120912
  Receipt Date: 20120912
  Transmission Date: 20130627
  Serious: Yes (Other)
  Sender: FDA-Public Use
  Company Number: CN-ABBOTT-12P-035-0969606-00

PATIENT
  Age: 62 Year
  Sex: Female

DRUGS (1)
  1. PROPAFENONE [Suspect]
     Indication: PRODUCT USED FOR UNKNOWN INDICATION
     Route: 042

REACTIONS (2)
  - Haemolysis [Recovered/Resolved]
  - Type III immune complex mediated reaction [Recovered/Resolved]
